FAERS Safety Report 21361953 (Version 2)
Quarter: 2022Q3

REPORT INFORMATION
  Report Type: Report from Study
  Country: US (occurrence: US)
  Receive Date: 20220922
  Receipt Date: 20220929
  Transmission Date: 20221026
  Serious: Yes (Other)
  Sender: FDA-Public Use
  Company Number: US-ABBVIE-4127349

PATIENT
  Age: 69 Year
  Sex: Male

DRUGS (3)
  1. SKYRIZI [Suspect]
     Active Substance: RISANKIZUMAB-RZAA
     Indication: Psoriasis
     Route: 058
  2. SKYRIZI [Suspect]
     Active Substance: RISANKIZUMAB-RZAA
     Dosage: WEEK ZERO
     Route: 058
     Dates: start: 20211012
  3. SKYRIZI [Suspect]
     Active Substance: RISANKIZUMAB-RZAA
     Dosage: WEEK FOUR
     Route: 058

REACTIONS (6)
  - Procedural pain [Unknown]
  - Insomnia [Unknown]
  - Injection site bruising [Unknown]
  - General physical health deterioration [Unknown]
  - Arthrodesis [Unknown]
  - Injection site pain [Unknown]

NARRATIVE: CASE EVENT DATE: 20220912
